FAERS Safety Report 8983262 (Version 4)
Quarter: 2013Q1

REPORT INFORMATION
  Report Type: Report from Study
  Country: DE (occurrence: DE)
  Receive Date: 20121221
  Receipt Date: 20130311
  Transmission Date: 20140127
  Serious: Yes (Hospitalization)
  Sender: FDA-Public Use
  Company Number: DE-GILEAD-2012-0065922

PATIENT
  Age: 75 Year
  Sex: Male

DRUGS (4)
  1. AMBRISENTAN [Suspect]
     Indication: PULMONARY ARTERIAL HYPERTENSION
     Dosage: 5 MG, QD
     Dates: start: 20120503
  2. TADALAFIL [Suspect]
     Indication: PULMONARY ARTERIAL HYPERTENSION
     Dosage: 40 MG, QD
     Route: 048
     Dates: start: 20120111, end: 20121211
  3. FUROSEMID                          /00032601/ [Concomitant]
     Indication: PULMONARY ARTERIAL HYPERTENSION
     Dosage: 40 MG, QD
     Route: 042
     Dates: start: 20121129
  4. CLEXANE [Concomitant]
     Indication: PULMONARY ARTERIAL HYPERTENSION
     Dosage: 40MG PER DAY
     Route: 058
     Dates: start: 20121128

REACTIONS (1)
  - Interstitial lung disease [Not Recovered/Not Resolved]
